FAERS Safety Report 10697217 (Version 2)
Quarter: 2015Q2

REPORT INFORMATION
  Report Type: Spontaneous
  Country: US (occurrence: US)
  Receive Date: 20150108
  Receipt Date: 20150410
  Transmission Date: 20150821
  Serious: Yes (Death, Hospitalization, Other)
  Sender: FDA-Public Use
  Company Number: PHEH2015US000495

PATIENT
  Sex: Male

DRUGS (1)
  1. EXJADE [Suspect]
     Active Substance: DEFERASIROX
     Indication: IRON OVERLOAD
     Route: 065

REACTIONS (7)
  - Malignant neoplasm progression [Fatal]
  - Pyrexia [Unknown]
  - Abscess [Unknown]
  - Acute myeloid leukaemia [Fatal]
  - Pancytopenia [Unknown]
  - Neutropenia [Unknown]
  - Infection [Unknown]
